FAERS Safety Report 18893648 (Version 1)
Quarter: 2021Q1

REPORT INFORMATION
  Report Type: Spontaneous
  Country: US (occurrence: US)
  Receive Date: 20210215
  Receipt Date: 20210215
  Transmission Date: 20210420
  Serious: Yes (Other)
  Sender: FDA-Public Use
  Company Number: US-PURDUE-USA-2020-0204406

PATIENT
  Sex: Male

DRUGS (10)
  1. PERCOCET                           /00446701/ [Suspect]
     Active Substance: ACETAMINOPHEN\OXYCODONE HYDROCHLORIDE\OXYCODONE TEREPHTHALATE
     Indication: ARTHRITIS
     Dosage: UNKNOWN
     Route: 065
  2. OXYCODONE HCL CR TABLETS (SIMILAR TO NDA 22?272) [Suspect]
     Active Substance: OXYCODONE HYDROCHLORIDE
     Indication: ARTHRITIS
     Dosage: UNK
     Route: 048
     Dates: start: 2005
  3. LORTAB [Suspect]
     Active Substance: ACETAMINOPHEN\HYDROCODONE BITARTRATE
     Indication: ARTHRITIS
     Dosage: UNK
     Route: 048
     Dates: start: 2005
  4. LORTAB [Suspect]
     Active Substance: ACETAMINOPHEN\HYDROCODONE BITARTRATE
     Indication: SYSTEMIC LUPUS ERYTHEMATOSUS
  5. OXYCODONE HCL TABLETS (RHODES 91?490) [Suspect]
     Active Substance: OXYCODONE HYDROCHLORIDE
     Indication: ARTHRITIS
     Dosage: UNK
     Route: 048
     Dates: start: 2005
  6. MORPHINE SULFATE EXTENDED?RELEASE TABLETS (RHODES 74?769, 74?862) [Suspect]
     Active Substance: MORPHINE SULFATE
     Indication: PRODUCT USED FOR UNKNOWN INDICATION
     Dosage: UNK
     Route: 048
  7. PERCOCET                           /00446701/ [Suspect]
     Active Substance: ACETAMINOPHEN\OXYCODONE HYDROCHLORIDE\OXYCODONE TEREPHTHALATE
     Indication: SYSTEMIC LUPUS ERYTHEMATOSUS
  8. OXYCONTIN [Suspect]
     Active Substance: OXYCODONE HYDROCHLORIDE
     Indication: ARTHRITIS
     Dosage: UNK
     Route: 048
     Dates: start: 2005
  9. OXYCODONE/ ACETAMINOPHEN TABLETS [Suspect]
     Active Substance: ACETAMINOPHEN\OXYCODONE HYDROCHLORIDE
     Indication: ARTHRITIS
     Dosage: UNK
     Route: 048
     Dates: start: 2005
  10. HYDROCODONE BITARTRATE AND ACETAMINOPHEN [Suspect]
     Active Substance: ACETAMINOPHEN\HYDROCODONE BITARTRATE
     Indication: PRODUCT USED FOR UNKNOWN INDICATION
     Dosage: UNK
     Route: 048

REACTIONS (8)
  - Learning disability [Unknown]
  - Personality disorder [Unknown]
  - Cardiac disorder [Unknown]
  - Drug dependence [Unknown]
  - Arrhythmia [Unknown]
  - Drug withdrawal syndrome [Unknown]
  - Developmental delay [Unknown]
  - Amnesia [Unknown]
